FAERS Safety Report 9969915 (Version 1)
Quarter: 2014Q1

REPORT INFORMATION
  Report Type: Spontaneous
  Country: FR (occurrence: FR)
  Receive Date: 20140306
  Receipt Date: 20140306
  Transmission Date: 20141002
  Serious: Yes (Hospitalization)
  Sender: FDA-Public Use
  Company Number: FR-SUN PHARMACEUTICAL INDUSTRIES LTD-2014SUN00459

PATIENT
  Age: 48 Year
  Sex: Female

DRUGS (1)
  1. OXALIPLATIN SUN 5 MG/ML POW FOR SOL FOR INFUSION [Suspect]
     Indication: PSEUDOMYXOMA PERITONEI
     Dosage: 460 MG/M2, FOR 30 MINUTES
     Route: 065

REACTIONS (2)
  - Histiocytosis haematophagic [Recovering/Resolving]
  - Thrombocytopenia [Recovering/Resolving]
